FAERS Safety Report 26050709 (Version 2)
Quarter: 2025Q4

REPORT INFORMATION
  Report Type: Report from Study
  Country: TR (occurrence: TR)
  Receive Date: 20251116
  Receipt Date: 20251120
  Transmission Date: 20260118
  Serious: Yes (Death, Hospitalization, Other)
  Sender: TAKEDA
  Company Number: TR-JNJFOC-20251155619

PATIENT

DRUGS (4)
  1. BORTEZOMIB [Suspect]
     Active Substance: BORTEZOMIB
     Indication: Plasma cell myeloma
     Dosage: UNK
  2. DEXAMETHASONE [Suspect]
     Active Substance: DEXAMETHASONE
     Indication: Plasma cell myeloma
     Dosage: UNK
  3. DARZALEX [Suspect]
     Active Substance: DARATUMUMAB
     Indication: Plasma cell myeloma
     Dosage: UNK
  4. LENALIDOMIDE [Suspect]
     Active Substance: LENALIDOMIDE
     Indication: Plasma cell myeloma
     Dosage: UNK

REACTIONS (9)
  - Endocarditis [Fatal]
  - Pneumonia viral [Unknown]
  - Neutropenia [Unknown]
  - Lymphopenia [Unknown]
  - Infection [Unknown]
  - Respiratory tract infection [Unknown]
  - Influenza [Unknown]
  - COVID-19 [Unknown]
  - Urinary tract infection [Unknown]
